FAERS Safety Report 12845027 (Version 1)
Quarter: 2016Q4

REPORT INFORMATION
  Report Type: Spontaneous
  Country: DE (occurrence: DE)
  Receive Date: 20161013
  Receipt Date: 20161013
  Transmission Date: 20170207
  Serious: Yes (Other)
  Sender: FDA-Public Use
  Company Number: DE-PFIZER INC-2016476049

PATIENT
  Age: 60 Year
  Sex: Male

DRUGS (5)
  1. IRINOTECAN [Concomitant]
     Active Substance: IRINOTECAN
     Indication: INTESTINAL ADENOCARCINOMA
     Dosage: 180 MG/M2, UNK
  2. FLUOROURACIL. [Concomitant]
     Active Substance: FLUOROURACIL
     Indication: INTESTINAL ADENOCARCINOMA
     Dosage: 400 MG/M2, UNK
     Route: 040
  3. LEUCOVORIN /00566702/ [Concomitant]
     Active Substance: LEUCOVORIN
     Indication: INTESTINAL ADENOCARCINOMA
     Dosage: 400 MG/M2, UNK
  4. FLUOROURACIL. [Concomitant]
     Active Substance: FLUOROURACIL
     Dosage: 2400 MG/M2 CONTINUOS INFUSION OVER 46H, EVERY 2 WEEKS
     Route: 041
  5. OXALIPLATIN. [Suspect]
     Active Substance: OXALIPLATIN
     Indication: INTESTINAL ADENOCARCINOMA
     Dosage: 85 MG/M2, UNK

REACTIONS (1)
  - Polyneuropathy [Recovering/Resolving]
